FAERS Safety Report 12079399 (Version 1)
Quarter: 2016Q1

REPORT INFORMATION
  Report Type: Spontaneous
  Country: US (occurrence: None)
  Receive Date: 20160212
  Receipt Date: 20160212
  Transmission Date: 20160526
  Serious: Yes (Hospitalization)
  Sender: FDA-Public Use
  Company Number: None

PATIENT
  Age: 63 Year
  Sex: Female
  Weight: 65.77 kg

DRUGS (7)
  1. OXYBUTIN [Concomitant]
     Active Substance: OXYBUTYNIN
  2. WOMENS MULTI-VITAMIN [Concomitant]
  3. OMEPRAZOLE. [Concomitant]
     Active Substance: OMEPRAZOLE
  4. MELOXICAM. [Suspect]
     Active Substance: MELOXICAM
     Indication: ARTHRITIS
     Route: 048
     Dates: start: 20151202, end: 20151226
  5. ONDANSETRON [Concomitant]
     Active Substance: ONDANSETRON
  6. B-COMPLEX VITAMIN [Concomitant]
  7. GENERIC ARTHRITIS PAIN RELIEVER [Concomitant]

REACTIONS (1)
  - Chest pain [None]

NARRATIVE: CASE EVENT DATE: 20151226
